FAERS Safety Report 22302613 (Version 2)
Quarter: 2023Q2

REPORT INFORMATION
  Report Type: Spontaneous
  Country: US (occurrence: US)
  Receive Date: 20230510
  Receipt Date: 20230515
  Transmission Date: 20230721
  Serious: Yes (Other)
  Sender: FDA-Public Use
  Company Number: US-SANOFI-01602972

PATIENT
  Age: 73 Year
  Sex: Female

DRUGS (1)
  1. SOLIQUA 100/33 [Suspect]
     Active Substance: INSULIN GLARGINE\LIXISENATIDE
     Indication: Type 2 diabetes mellitus
     Dosage: 40 IU, QD
     Route: 065

REACTIONS (3)
  - Kidney infection [Unknown]
  - Confusional state [Unknown]
  - Blood glucose fluctuation [Unknown]
